FAERS Safety Report 8574416-6 (Version None)
Quarter: 2012Q3

REPORT INFORMATION
  Report Type: 
  Country: None (occurrence: None)
  Receive Date: 20120806
  Receipt Date: 20120726
  Transmission Date: 20120928
  Serious: Yes (Other)
  Sender: FDA-Public Use
  Company Number: DE-PFIZER INC-2012181263

PATIENT
  Age: 52 Year
  Sex: Female

DRUGS (2)
  1. EPINEPHRINE [Suspect]
     Indication: HYPERSENSITIVITY
     Dosage: 1 DF, 1X/DAY
     Route: 030
     Dates: start: 20120716
  2. OPIPRAMOL [Concomitant]
     Dosage: 50 MG, 1X/DAY
     Route: 048
     Dates: start: 20111130

REACTIONS (3)
  - INJECTION SITE DISCOLOURATION [None]
  - ACCIDENTAL EXPOSURE [None]
  - INJECTION SITE COLDNESS [None]
